FAERS Safety Report 13446435 (Version 1)
Quarter: 2017Q2

REPORT INFORMATION
  Report Type: Spontaneous
  Country: US (occurrence: US)
  Receive Date: 20170414
  Receipt Date: 20170414
  Transmission Date: 20170830
  Serious: Yes (Other)
  Sender: FDA-Public Use
  Company Number: None

PATIENT
  Age: 64 Year
  Sex: Female
  Weight: 114.31 kg

DRUGS (1)
  1. DESVENIAFADINE SUCCINATE [Suspect]
     Active Substance: DESVENLAFAXINE SUCCINATE
     Indication: MAJOR DEPRESSION
     Route: 048
     Dates: start: 20170322, end: 20170412

REACTIONS (3)
  - Anger [None]
  - Gait disturbance [None]
  - Vision blurred [None]

NARRATIVE: CASE EVENT DATE: 20170411
